FAERS Safety Report 15213987 (Version 2)
Quarter: 2022Q3

REPORT INFORMATION
  Report Type: Spontaneous
  Country: US (occurrence: US)
  Receive Date: 20180730
  Receipt Date: 20220919
  Transmission Date: 20221026
  Serious: Yes (Other)
  Sender: FDA-Public Use
  Company Number: US-SA-2018SA205948

PATIENT
  Age: 51 Year
  Sex: Female

DRUGS (1)
  1. AUBAGIO [Suspect]
     Active Substance: TERIFLUNOMIDE
     Dosage: 14 MG, QD
     Route: 048
     Dates: start: 20180608

REACTIONS (5)
  - Neuropathy peripheral [Unknown]
  - Peripheral swelling [Unknown]
  - Condition aggravated [Unknown]
  - Pain in extremity [Unknown]
  - Headache [Unknown]
